FAERS Safety Report 8875387 (Version 1)
Quarter: 2012Q4

REPORT INFORMATION
  Report Type: 
  Country: US (occurrence: US)
  Receive Date: 20121029
  Receipt Date: 20121029
  Transmission Date: 20130627
  Serious: Yes (Hospitalization, Other)
  Sender: FDA-Public Use
  Company Number: US-MERCK-0812USA01968

PATIENT
  Age: 40 Year
  Sex: Female
  Weight: 48.7 kg

DRUGS (6)
  1. VORINOSTAT [Suspect]
     Indication: SALIVARY GLAND CANCER
     Dosage: 200 mg, qd
     Route: 048
     Dates: start: 20080724
  2. VORINOSTAT [Suspect]
     Dosage: 400 mg, qd
     Route: 048
     Dates: start: 20080729, end: 20080729
  3. VORINOSTAT [Suspect]
     Dosage: 200 mg, qd
     Route: 048
     Dates: start: 20081120
  4. VORINOSTAT [Suspect]
     Dosage: 400 mg, qd
     Route: 048
     Dates: start: 20081125, end: 20081125
  5. VORINOSTAT [Suspect]
     Dosage: 200 mg, qd
     Route: 048
     Dates: start: 20090402
  6. VORINOSTAT [Suspect]
     Dosage: 400 mg, qd
     Route: 048
     Dates: start: 20090407, end: 20090407

REACTIONS (10)
  - Failure to thrive [Recovered/Resolved]
  - Sepsis [Recovered/Resolved]
  - Dyspnoea [Recovered/Resolved]
  - Fatigue [Recovered/Resolved]
  - Pyrexia [Recovered/Resolved]
  - Pneumonia [Recovered/Resolved]
  - Dyspnoea [Recovered/Resolved]
  - Pneumonitis [Recovered/Resolved]
  - Lung infiltration [Recovered/Resolved]
  - Pulmonary embolism [Recovered/Resolved]
